FAERS Safety Report 5287776-9 (Version None)
Quarter: 2007Q1

REPORT INFORMATION
  Report Type: 
  Country: None (occurrence: None)
  Receive Date: 20070109
  Receipt Date: 20060309
  Transmission Date: 20070707
  Serious: Yes (Hospitalization, Other)
  Sender: FDA-Public Use
  Company Number: WAES 0603USA01551

PATIENT
  Age: 9 Year
  Sex: Female

DRUGS (5)
  1. DECADRON [Suspect]
     Indication: ACUTE LYMPHOCYTIC LEUKAEMIA
     Dosage: 3.5 MG/M[2]/;BID/PO
     Route: 048
     Dates: start: 20060214
  2. ONCASPAR [Suspect]
     Indication: ACUTE LYMPHOCYTIC LEUKAEMIA
     Dosage: IM
     Route: 030
     Dates: start: 20060216
  3. FORTAZ [Concomitant]
  4. CYTARABINE [Concomitant]
  5. VINCRISTINE SULFATE [Concomitant]

REACTIONS (2)
  - CONSTIPATION [None]
  - HYPERGLYCAEMIA [None]
